FAERS Safety Report 4963424-X (Version None)
Quarter: 2006Q2

REPORT INFORMATION
  Report Type: 
  Country: None (occurrence: None)
  Receive Date: 20060405
  Receipt Date: 20060326
  Transmission Date: 20061013
  Serious: Yes (Other)
  Sender: FDA-Public Use
  Company Number: US-JNJFOC-20060306733

PATIENT
  Sex: Female
  Weight: 97.52 kg

DRUGS (4)
  1. REMICADE [Suspect]
     Route: 042
  2. EFFEXOR [Concomitant]
     Indication: DEPRESSION
  3. DIOVAN [Concomitant]
     Indication: BLOOD PRESSURE
     Dosage: 1/2 TABLET DAILY
  4. METHOTREXATE [Concomitant]
     Indication: ARTHRITIS

REACTIONS (3)
  - EYE SWELLING [None]
  - INFLUENZA [None]
  - MENINGITIS VIRAL [None]
